FAERS Safety Report 5142526-1 (Version None)
Quarter: 2006Q4

REPORT INFORMATION
  Report Type: 
  Country: None (occurrence: None)
  Receive Date: 20061027
  Receipt Date: 20061017
  Transmission Date: 20070319
  Serious: Yes (Hospitalization, Other)
  Sender: FDA-Public Use
  Company Number: 2006117385

PATIENT
  Age: 81 Year
  Sex: Female
  Weight: 81.6475 kg

DRUGS (4)
  1. TIKOSYN [Suspect]
     Indication: ATRIAL FIBRILLATION
     Dosage: 500 MCG (250 MCG, 2 IN 1 D), ORAL; SEE IMAGE
     Route: 048
     Dates: start: 20040817, end: 20060801
  2. TIKOSYN [Suspect]
     Indication: ATRIAL FIBRILLATION
     Dosage: 500 MCG (250 MCG, 2 IN 1 D), ORAL; SEE IMAGE
     Route: 048
     Dates: start: 20060919
  3. CARDIZEM [Suspect]
     Indication: ATRIAL FIBRILLATION
  4. HYDRALAZINE HCL [Suspect]
     Dosage: 30 MG (10 MG, TID)

REACTIONS (8)
  - ABDOMINAL PAIN [None]
  - ARTHRITIS [None]
  - ASTHENIA [None]
  - ATRIAL FIBRILLATION [None]
  - BACK PAIN [None]
  - CREATININE URINE INCREASED [None]
  - MUSCULOSKELETAL PAIN [None]
  - NAUSEA [None]
